FAERS Safety Report 6809930-4 (Version None)
Quarter: 2010Q2

REPORT INFORMATION
  Report Type: 
  Country: None (occurrence: None)
  Receive Date: 20100630
  Receipt Date: 20100629
  Transmission Date: 20101027
  Serious: Yes (Death)
  Sender: FDA-Public Use
  Company Number: A0851823A

PATIENT
  Age: 45 Year
  Sex: Female
  Weight: 39.7 kg

DRUGS (1)
  1. PAZOPANIB [Suspect]
     Dosage: 800MG PER DAY
     Route: 048
     Dates: start: 20100121, end: 20100313

REACTIONS (1)
  - TUMOUR HAEMORRHAGE [None]
